FAERS Safety Report 8878830 (Version 1)
Quarter: 2012Q4

REPORT INFORMATION
  Report Type: Report from Study
  Country: CA (occurrence: CA)
  Receive Date: 20121026
  Receipt Date: 20121026
  Transmission Date: 20130627
  Serious: Yes (Other)
  Sender: FDA-Public Use
  Company Number: CA-BRISTOL-MYERS SQUIBB COMPANY-16176539

PATIENT
  Age: 71 Year
  Sex: Female

DRUGS (9)
  1. SPRYCEL [Suspect]
     Indication: CHRONIC MYELOID LEUKAEMIA
     Route: 048
     Dates: start: 20110214
  2. INSULIN [Concomitant]
  3. COUMADIN [Concomitant]
  4. ACETYLSALICYLIC ACID [Concomitant]
  5. JANUVIA [Concomitant]
  6. DIAMICRON [Concomitant]
  7. PANTOLOC [Concomitant]
  8. BISOPROLOL [Concomitant]
  9. PRAVASTATINE [Concomitant]

REACTIONS (10)
  - Electrocardiogram abnormal [Not Recovered/Not Resolved]
  - Dyspnoea at rest [Not Recovered/Not Resolved]
  - Vaginal haemorrhage [Not Recovered/Not Resolved]
  - Abdominal pain [Not Recovered/Not Resolved]
  - Rash [Recovering/Resolving]
  - Nasopharyngitis [Not Recovered/Not Resolved]
  - Body temperature increased [Not Recovered/Not Resolved]
  - Cough [Not Recovered/Not Resolved]
  - Chills [Not Recovered/Not Resolved]
  - Fatigue [Not Recovered/Not Resolved]
